FAERS Safety Report 7867547-7 (Version None)
Quarter: 2011Q4

REPORT INFORMATION
  Report Type: 
  Country: None (occurrence: None)
  Receive Date: 20111028
  Receipt Date: 20111020
  Transmission Date: 20120403
  Serious: Yes (Other)
  Sender: FDA-Public Use
  Company Number: PHHY2011DE71303

PATIENT
  Sex: Female

DRUGS (1)
  1. GILENYA [Suspect]
     Indication: MULTIPLE SCLEROSIS
     Dosage: 0.5 MG, QD
     Route: 048
     Dates: start: 20110719

REACTIONS (7)
  - DIARRHOEA [None]
  - STRESS [None]
  - WEIGHT DECREASED [None]
  - DECREASED APPETITE [None]
  - SEASONAL ALLERGY [None]
  - CRYING [None]
  - VOMITING [None]
